FAERS Safety Report 8122054-1 (Version None)
Quarter: 2012Q1

REPORT INFORMATION
  Report Type: 
  Country: None (occurrence: None)
  Receive Date: 20120208
  Receipt Date: 20120123
  Transmission Date: 20120608
  Serious: Yes (Death, Life-Threatening, Hospitalization, Other)
  Sender: FDA-Public Use
  Company Number: 2012MA001017

PATIENT
  Sex: Female
  Weight: 83.4619 kg

DRUGS (36)
  1. COUMADIN [Concomitant]
  2. LABETALOL HCL [Concomitant]
  3. METOPROLOL TARTRATE [Concomitant]
  4. TOPROL-XL [Concomitant]
  5. DIGOXIN [Suspect]
     Indication: ATRIAL FIBRILLATION
     Dosage: 0.25 MG;QD;PO
     Route: 048
     Dates: start: 20070506, end: 20080101
  6. CIPROFLOXACIN [Concomitant]
  7. POTASSIUM CHLORIDE [Concomitant]
  8. LIPITOR [Concomitant]
  9. AVAPRO [Concomitant]
  10. LASIX [Concomitant]
  11. MEPERIDINE HCL [Concomitant]
  12. ASPIRIN [Concomitant]
  13. BEXTRA [Concomitant]
  14. CATAPRES [Concomitant]
  15. CODEINE [Concomitant]
  16. COREG [Concomitant]
  17. NORVASC [Concomitant]
  18. CLONIDINE [Concomitant]
  19. KAY CIEL DURA-TABS [Concomitant]
  20. LEVOTHYROXINE SODIUM [Concomitant]
  21. SYNTHROID [Concomitant]
  22. ALTACE [Concomitant]
  23. POTASSIUM CHLORIDE [Concomitant]
  24. NEXIUM [Concomitant]
  25. AMBIEN [Concomitant]
  26. BETAPACE [Concomitant]
  27. ASPIRIN [Concomitant]
  28. HEPARIN [Concomitant]
  29. IMDUR [Concomitant]
  30. LOVENOX [Concomitant]
  31. AMIODARONE HCL [Concomitant]
  32. AMLODIPINE [Concomitant]
  33. CARDIZEM [Concomitant]
  34. DEMEROL [Concomitant]
  35. LOPRESSOR [Concomitant]
  36. ROCEPHIN [Concomitant]

REACTIONS (60)
  - ABDOMINAL PAIN [None]
  - CARDIOMEGALY [None]
  - STRESS [None]
  - VENTILATION/PERFUSION SCAN ABNORMAL [None]
  - MALIGNANT HYPERTENSION [None]
  - ORGAN FAILURE [None]
  - FALL [None]
  - GASTRITIS [None]
  - ARTHROPATHY [None]
  - PERIPHERAL VASCULAR DISORDER [None]
  - HYPOXIA [None]
  - ATRIAL FIBRILLATION [None]
  - CORONARY ARTERY DISEASE [None]
  - ARRHYTHMIA [None]
  - PULMONARY EMBOLISM [None]
  - DEEP VEIN THROMBOSIS [None]
  - HYPERLIPIDAEMIA [None]
  - SICK SINUS SYNDROME [None]
  - HYPERKALAEMIA [None]
  - DYSPNOEA [None]
  - HIATUS HERNIA [None]
  - CHEST PAIN [None]
  - CARDIAC FAILURE CONGESTIVE [None]
  - MYOCARDIAL INFARCTION [None]
  - BUNDLE BRANCH BLOCK LEFT [None]
  - ACUTE CORONARY SYNDROME [None]
  - BACK PAIN [None]
  - IMPAIRED SELF-CARE [None]
  - COAGULOPATHY [None]
  - PALPITATIONS [None]
  - DIAPHRAGMATIC HERNIA [None]
  - PNEUMONIA [None]
  - HYPERHIDROSIS [None]
  - ABDOMINAL DISTENSION [None]
  - PAIN [None]
  - PERIPHERAL PULSE DECREASED [None]
  - PULMONARY HYPERTENSION [None]
  - HYPERTENSIVE CRISIS [None]
  - ANAEMIA [None]
  - DISEASE PROGRESSION [None]
  - DYSLIPIDAEMIA [None]
  - GENERALISED OEDEMA [None]
  - LEFT VENTRICULAR HYPERTROPHY [None]
  - INCONTINENCE [None]
  - CARDIOMYOPATHY [None]
  - CARDIAC OUTPUT DECREASED [None]
  - NAUSEA [None]
  - ABDOMINAL HERNIA [None]
  - LEUKOCYTOSIS [None]
  - OEDEMA PERIPHERAL [None]
  - RADICULOPATHY [None]
  - ASTHENIA [None]
  - MITRAL VALVE INCOMPETENCE [None]
  - BREATH SOUNDS ABNORMAL [None]
  - FIBRIN D DIMER INCREASED [None]
  - GAIT DISTURBANCE [None]
  - PAIN IN EXTREMITY [None]
  - TACHYCARDIA [None]
  - TRICUSPID VALVE INCOMPETENCE [None]
  - ELECTROCARDIOGRAM ST-T CHANGE [None]
